FAERS Safety Report 7134285-8 (Version None)
Quarter: 2010Q4

REPORT INFORMATION
  Report Type: 
  Country: None (occurrence: None)
  Receive Date: 20101203
  Receipt Date: 20101119
  Transmission Date: 20110411
  Serious: Yes (Death, Hospitalization, Other)
  Sender: FDA-Public Use
  Company Number: US-AMGEN-USASP2010001508

PATIENT

DRUGS (18)
  1. NPLATE [Suspect]
     Indication: IDIOPATHIC THROMBOCYTOPENIC PURPURA
     Dosage: 1 A?G/KG, UNK
     Dates: start: 20081114, end: 20081114
  2. NPLATE [Suspect]
     Dates: start: 20081114
  3. IMMUNOGLOBULINS [Concomitant]
     Indication: IDIOPATHIC THROMBOCYTOPENIC PURPURA
     Dosage: UNK
     Dates: start: 20081013
  4. METOPROLOL [Concomitant]
  5. OMEPRAZOLE [Concomitant]
  6. SENOKOT [Concomitant]
  7. DIOVAN [Concomitant]
  8. MIRALAX [Concomitant]
  9. FERROUS SULFATE [Concomitant]
  10. CYMBALTA [Concomitant]
  11. NEURONTIN [Concomitant]
  12. LEVOTHROID [Concomitant]
  13. PREDNISONE [Concomitant]
  14. FLOMAX [Concomitant]
  15. METHADONE HCL [Concomitant]
  16. NOVOLOG [Concomitant]
  17. HYDROMORPHONE HCL [Concomitant]
  18. BENADRYL [Concomitant]

REACTIONS (10)
  - ASTHENIA [None]
  - DIFFUSE LARGE B-CELL LYMPHOMA [None]
  - EPISTAXIS [None]
  - IDIOPATHIC THROMBOCYTOPENIC PURPURA [None]
  - OCCULT BLOOD POSITIVE [None]
  - PAIN [None]
  - PELVIC MASS [None]
  - PLATELET COUNT DECREASED [None]
  - SINUS TACHYCARDIA [None]
  - THROMBOCYTOPENIA [None]
